FAERS Safety Report 15663645 (Version 1)
Quarter: 2018Q4

REPORT INFORMATION
  Report Type: Spontaneous
  Country: US (occurrence: US)
  Receive Date: 20181128
  Receipt Date: 20181128
  Transmission Date: 20190205
  Serious: No
  Sender: FDA-Public Use
  Company Number: US-009507513-1811USA004033

PATIENT
  Sex: Female

DRUGS (2)
  1. NEXPLANON [Suspect]
     Active Substance: ETONOGESTREL
     Dosage: 1 IMPLANT EVERY 3 YEARS
     Route: 059
     Dates: end: 20181108
  2. NEXPLANON [Suspect]
     Active Substance: ETONOGESTREL
     Dosage: A NEW ROD
     Route: 059
     Dates: start: 20181108

REACTIONS (2)
  - Complication associated with device [Recovered/Resolved]
  - Device deployment issue [Recovered/Resolved]
